FAERS Safety Report 4976843-2 (Version None)
Quarter: 2006Q2

REPORT INFORMATION
  Report Type: 
  Country: None (occurrence: None)
  Receive Date: 20060418
  Receipt Date: 20060418
  Transmission Date: 20061013
  Serious: Yes (Hospitalization)
  Sender: FDA-Public Use
  Company Number: None

PATIENT
  Age: 81 Year
  Sex: Male

DRUGS (5)
  1. CYTOXAN [Suspect]
     Indication: NON-HODGKIN'S LYMPHOMA
     Dosage: 750 MG /M2 DAY IV
     Route: 042
     Dates: start: 20060330
  2. ADRIAMYCIN PFS [Suspect]
     Indication: NON-HODGKIN'S LYMPHOMA
     Dosage: 50 MG /M2 DAY IV
     Route: 042
     Dates: start: 20060330
  3. VINCRISTINE [Suspect]
     Indication: NON-HODGKIN'S LYMPHOMA
     Dosage: 1.4 MG /M2 IV DAY 1
     Route: 042
     Dates: start: 20060330
  4. PREDNISONE TAB [Suspect]
     Indication: NON-HODGKIN'S LYMPHOMA
     Dosage: 100 MG PO DAY 1-5
     Route: 048
     Dates: start: 20060330, end: 20060403
  5. NEULASTA [Concomitant]

REACTIONS (5)
  - ERYTHEMA [None]
  - FEBRILE NEUTROPENIA [None]
  - INFLAMMATION [None]
  - LACERATION [None]
  - PNEUMONIA [None]
